FAERS Safety Report 7621077-6 (Version None)
Quarter: 2011Q3

REPORT INFORMATION
  Report Type: 
  Country: None (occurrence: None)
  Receive Date: 20110719
  Receipt Date: 20100803
  Transmission Date: 20111222
  Serious: No
  Sender: FDA-Public Use
  Company Number: US-KINGPHARMUSA00001-K201000972

PATIENT
  Sex: Female
  Weight: 72.562 kg

DRUGS (7)
  1. HYDROCHLOROTHIAZIDE [Concomitant]
     Indication: HYPERTENSION
     Dosage: UNK
  2. PLAQUENIL [Concomitant]
     Indication: RHEUMATOID ARTHRITIS
     Dosage: UNK
  3. LEVOXYL [Suspect]
     Indication: THYROID DISORDER
     Dosage: 50 MCG, QD
     Route: 048
     Dates: start: 20100501
  4. TRILIPIX [Concomitant]
     Dosage: 130 MG, UNK
  5. GLUMETZA [Concomitant]
     Indication: GLUCOSE TOLERANCE IMPAIRED
     Dosage: UNK
  6. NEXIUM [Concomitant]
     Indication: GASTRIC DISORDER
     Dosage: UNK
  7. ANTIHYPERTENSIVES [Concomitant]
     Indication: HYPERTENSION
     Dosage: UNK

REACTIONS (5)
  - ARTHRALGIA [None]
  - PRURITUS [None]
  - JOINT SWELLING [None]
  - PARAESTHESIA [None]
  - WEIGHT DECREASED [None]
